FAERS Safety Report 13195983 (Version 1)
Quarter: 2017Q1

REPORT INFORMATION
  Report Type: Spontaneous
  Country: US (occurrence: US)
  Receive Date: 20170208
  Receipt Date: 20170208
  Transmission Date: 20170428
  Serious: Yes (Death)
  Sender: FDA-Public Use
  Company Number: US-CELGENEUS-USA-2017019614

PATIENT
  Sex: Male
  Weight: 83 kg

DRUGS (2)
  1. ZOFRAN [Concomitant]
     Active Substance: ONDANSETRON HYDROCHLORIDE
     Indication: PRODUCT USED FOR UNKNOWN INDICATION
     Route: 065
  2. VIDAZA [Suspect]
     Active Substance: AZACITIDINE
     Indication: MYELODYSPLASTIC SYNDROME
     Dosage: 155 MG
     Route: 058
     Dates: start: 20160919, end: 20160923

REACTIONS (7)
  - Atrial fibrillation [Fatal]
  - Shock [Fatal]
  - Acute kidney injury [Fatal]
  - Febrile neutropenia [Fatal]
  - Acute respiratory failure [Fatal]
  - Pancytopenia [Fatal]
  - Pneumonia [Fatal]
